FAERS Safety Report 15727832 (Version 2)
Quarter: 2019Q2

REPORT INFORMATION
  Report Type: Spontaneous
  Country: US (occurrence: US)
  Receive Date: 20181217
  Receipt Date: 20190607
  Transmission Date: 20190711
  Serious: No
  Sender: FDA-Public Use
  Company Number: US-PFIZER INC-2018512079

PATIENT
  Age: 69 Year
  Sex: Female
  Weight: 86.18 kg

DRUGS (1)
  1. IBUPROFEN SODIUM. [Suspect]
     Active Substance: IBUPROFEN SODIUM
     Indication: PAIN
     Dosage: 400 MG, 2X/DAY, (ONE IN THE MORNING AND ONE AT NIGHT)
     Route: 048

REACTIONS (3)
  - Foreign body in respiratory tract [Unknown]
  - Wrong technique in product usage process [Unknown]
  - Nausea [Recovering/Resolving]
